FAERS Safety Report 14325987 (Version 1)
Quarter: 2017Q4

REPORT INFORMATION
  Report Type: Spontaneous
  Country: JP (occurrence: JP)
  Receive Date: 20171226
  Receipt Date: 20171226
  Transmission Date: 20180321
  Serious: Yes (Other)
  Sender: FDA-Public Use
  Company Number: JP-ELI_LILLY_AND_COMPANY-JP201712004489

PATIENT
  Age: 86 Year
  Sex: Female

DRUGS (14)
  1. DULOXETINE HYDROCHLORIDE. [Suspect]
     Active Substance: DULOXETINE HYDROCHLORIDE
     Indication: PRODUCT USED FOR UNKNOWN INDICATION
     Dosage: 20 MG, DAILY
     Route: 048
     Dates: start: 20171209, end: 20171209
  2. ATENOLOL. [Concomitant]
     Active Substance: ATENOLOL
  3. ASPARA POTASSIUM [Concomitant]
     Active Substance: POTASSIUM ASPARTATE
  4. AZILVA [Concomitant]
     Active Substance: AZILSARTAN KAMEDOXOMIL
  5. MAGNESIUM OXIDE. [Concomitant]
     Active Substance: MAGNESIUM OXIDE
  6. FAMOTIDINE. [Concomitant]
     Active Substance: FAMOTIDINE
  7. KYORIN AP 2 [Concomitant]
     Active Substance: SIMETRIDE
  8. CHLORPHENESIN                      /00183302/ [Concomitant]
  9. MYSLEE [Concomitant]
     Active Substance: ZOLPIDEM TARTRATE
  10. TRICHLORMETHIAZIDE [Concomitant]
     Active Substance: TRICHLORMETHIAZIDE
  11. PRAVASTATIN                        /00880402/ [Concomitant]
     Active Substance: PRAVASTATIN SODIUM
  12. YAKUBAN [Concomitant]
     Active Substance: FLURBIPROFEN
     Route: 062
  13. IFENPRODIL [Concomitant]
     Active Substance: IFENPRODIL
  14. LIMAPROST [Concomitant]
     Active Substance: LIMAPROST

REACTIONS (1)
  - Cerebral infarction [Unknown]

NARRATIVE: CASE EVENT DATE: 20171209
